FAERS Safety Report 6175824-3 (Version None)
Quarter: 2009Q2

REPORT INFORMATION
  Report Type: 
  Country: None (occurrence: None)
  Receive Date: 20090501
  Receipt Date: 20090423
  Transmission Date: 20091009
  Serious: Yes (Hospitalization)
  Sender: FDA-Public Use
  Company Number: AU-BIOGENIDEC-2008BI014049

PATIENT
  Age: 31 Year
  Sex: Male

DRUGS (2)
  1. TYSABRI [Suspect]
     Indication: RELAPSING-REMITTING MULTIPLE SCLEROSIS
     Route: 042
     Dates: start: 20080505
  2. CATAPRES [Concomitant]
     Indication: MUSCLE SPASTICITY

REACTIONS (4)
  - CONFUSIONAL STATE [None]
  - NEUROGENIC BLADDER [None]
  - URINARY RETENTION [None]
  - URINARY TRACT INFECTION [None]
